FAERS Safety Report 9289549 (Version 2)
Quarter: 2013Q3

REPORT INFORMATION
  Report Type: Spontaneous
  Country: AU (occurrence: AU)
  Receive Date: 20130515
  Receipt Date: 20130708
  Transmission Date: 20140515
  Serious: Yes (Death)
  Sender: FDA-Public Use
  Company Number: AU-B.I. PHARMACEUTICALS,INC./RIDGEFIELD-2013-AU-00569AU

PATIENT
  Sex: Male

DRUGS (6)
  1. PRADAXA [Suspect]
     Indication: ATRIAL FIBRILLATION
     Dosage: 220 MG
     Dates: start: 201108, end: 20110823
  2. TRITACE [Concomitant]
  3. SERETIDE [Concomitant]
  4. LIPITOR [Concomitant]
  5. IMDUR [Concomitant]
  6. NORVASC [Concomitant]

REACTIONS (1)
  - Lung neoplasm malignant [Fatal]
